FAERS Safety Report 10204842 (Version 1)
Quarter: 2014Q2

REPORT INFORMATION
  Report Type: Spontaneous
  Country: GB (occurrence: GB)
  Receive Date: 20140529
  Receipt Date: 20140529
  Transmission Date: 20141212
  Serious: Yes (Disabling, Other)
  Sender: FDA-Public Use
  Company Number: GB-PFIZER INC-2014143500

PATIENT
  Age: 46 Year
  Sex: Female
  Weight: 55.33 kg

DRUGS (5)
  1. LYRICA [Suspect]
     Indication: NEURALGIA
     Dosage: 150MG IN THE MORNING AND 200MG AT NIGHT (2X/DAY)
     Route: 048
     Dates: start: 20121214
  2. ALVERINE CITRATE [Concomitant]
     Dosage: UNK
  3. CODEINE [Concomitant]
     Dosage: UNK
  4. NAPROXEN [Concomitant]
     Dosage: UNK
  5. PARACETAMOL [Concomitant]
     Dosage: UNK

REACTIONS (19)
  - Tinnitus [Not Recovered/Not Resolved]
  - Blood creatine phosphokinase increased [Recovered/Resolved with Sequelae]
  - Withdrawal syndrome [Not Recovered/Not Resolved]
  - Drug withdrawal headache [Not Recovered/Not Resolved]
  - Insomnia [Not Recovered/Not Resolved]
  - Fatigue [Not Recovered/Not Resolved]
  - Depressed mood [Not Recovered/Not Resolved]
  - Tremor [Recovered/Resolved]
  - Malaise [Unknown]
  - Cognitive disorder [Unknown]
  - Amnesia [Unknown]
  - Dysarthria [Unknown]
  - Disorientation [Unknown]
  - Balance disorder [Unknown]
  - Dysuria [Unknown]
  - Muscular weakness [Unknown]
  - Restless legs syndrome [Unknown]
  - Hot flush [Unknown]
  - Drug dependence [Unknown]
